FAERS Safety Report 4348555-X (Version None)
Quarter: 2004Q2

REPORT INFORMATION
  Report Type: 
  Country: None (occurrence: None)
  Receive Date: 20040422
  Receipt Date: 20031006
  Transmission Date: 20050107
  Serious: Yes (Death, Hospitalization)
  Sender: FDA-Public Use
  Company Number: 105731

PATIENT
  Sex: Female

DRUGS (1)
  1. ACTILYSE (ALTEPLASE) PWDR + SOLVENT, INFUSION SOLN [Suspect]
     Indication: PULMONARY EMBOLISM
     Dosage: SINGLE, INTRAVENOUS
     Route: 042

REACTIONS (1)
  - STATUS EPILEPTICUS [None]
